FAERS Safety Report 6373399-7 (Version None)
Quarter: 2009Q3

REPORT INFORMATION
  Report Type: 
  Country: None (occurrence: None)
  Receive Date: 20090924
  Receipt Date: 20090312
  Transmission Date: 20100115
  Serious: No
  Sender: FDA-Public Use
  Company Number: US-ASTRAZENECA-2009UW06463

PATIENT
  Sex: Female
  Weight: 63.5 kg

DRUGS (9)
  1. SEROQUEL [Suspect]
     Indication: DEPRESSION
     Route: 048
  2. SEROQUEL [Suspect]
     Indication: ANXIETY
     Route: 048
  3. SEROQUEL [Suspect]
     Dosage: CUT TABLET INTO 3/4 TABLETS AND THEN 1/2 TABLETS
     Route: 048
  4. SEROQUEL [Suspect]
     Dosage: CUT TABLET INTO 3/4 TABLETS AND THEN 1/2 TABLETS
     Route: 048
  5. CLONAZEPAM [Concomitant]
  6. ATENOLOL [Concomitant]
  7. COZAAR [Concomitant]
  8. TRAMADOL HCL [Concomitant]
  9. ZOLOFT [Concomitant]

REACTIONS (10)
  - ANXIETY [None]
  - BLOOD PRESSURE DECREASED [None]
  - BLOOD PRESSURE INCREASED [None]
  - CONSTIPATION [None]
  - CRYING [None]
  - DEPRESSION [None]
  - DRY MOUTH [None]
  - FATIGUE [None]
  - HEADACHE [None]
  - SOMNOLENCE [None]
